FAERS Safety Report 4506776-7 (Version None)
Quarter: 2004Q4

REPORT INFORMATION
  Report Type: 
  Country: None (occurrence: None)
  Receive Date: 20041122
  Receipt Date: 20041109
  Transmission Date: 20050328
  Serious: No
  Sender: FDA-Public Use
  Company Number: NL-SOLVAY-00204003997

PATIENT
  Age: 227 Month
  Sex: Male

DRUGS (2)
  1. THYRAX [Concomitant]
     Indication: ILL-DEFINED DISORDER
     Dosage: DAILY DOSE:  UNKNOWN
     Route: 048
     Dates: start: 19950101
  2. COVERSYL [Suspect]
     Indication: HEART VALVE INSUFFICIENCY
     Dosage: DAILY DOSE: 2 MILLIGRAM(S)
     Route: 048
     Dates: start: 20040708, end: 20040830

REACTIONS (4)
  - DIZZINESS [None]
  - HEART RATE DECREASED [None]
  - HYPOTENSION [None]
  - SYNCOPE [None]
